FAERS Safety Report 9757714 (Version 3)
Quarter: 2014Q1

REPORT INFORMATION
  Report Type: Spontaneous
  Country: US (occurrence: US)
  Receive Date: 20131216
  Receipt Date: 20140325
  Transmission Date: 20141002
  Serious: Yes (Other)
  Sender: FDA-Public Use
  Company Number: US-ROCHE-1319224

PATIENT
  Age: 16 Year
  Sex: Male

DRUGS (10)
  1. PULMOZYME [Suspect]
     Indication: CYSTIC FIBROSIS
     Route: 055
  2. PERIACTIN [Concomitant]
     Indication: CYSTIC FIBROSIS
     Route: 048
  3. FLUTICASONE [Concomitant]
     Route: 045
  4. XOPENEX HFA [Concomitant]
     Route: 055
  5. ZENPEP [Concomitant]
     Indication: CYSTIC FIBROSIS
  6. ADEKS [Concomitant]
  7. AXID (UNITED STATES) [Concomitant]
     Indication: GASTROOESOPHAGEAL REFLUX DISEASE
  8. PROTONIX (UNITED STATES) [Concomitant]
     Indication: GASTROOESOPHAGEAL REFLUX DISEASE
  9. HYPERTONIC SALINE [Concomitant]
     Route: 065
  10. MIRALAX [Concomitant]

REACTIONS (7)
  - Respiratory distress [Recovered/Resolved]
  - Dyspnoea [Recovered/Resolved]
  - Chest discomfort [Recovered/Resolved]
  - Product quality issue [Unknown]
  - Dyspnoea [Recovered/Resolved]
  - Dyspnoea [Recovered/Resolved]
  - Bronchospasm [Unknown]
